FAERS Safety Report 6820305-4 (Version None)
Quarter: 2010Q3

REPORT INFORMATION
  Report Type: 
  Country: None (occurrence: None)
  Receive Date: 20100707
  Receipt Date: 20100623
  Transmission Date: 20110219
  Serious: No
  Sender: FDA-Public Use
  Company Number: US-B.I. PHARMACEUTICALS,INC./RIDGEFIELD-2010-BP-07103BP

PATIENT
  Age: 69 Year
  Sex: Female

DRUGS (1)
  1. MICARDIS [Suspect]
     Indication: HYPERTENSION
     Dosage: 40 MG
     Route: 048
     Dates: start: 20100416, end: 20100601

REACTIONS (4)
  - EAR PAIN [None]
  - EYE HAEMORRHAGE [None]
  - GINGIVAL BLEEDING [None]
  - TOOTHACHE [None]
